APPROVED DRUG PRODUCT: PROPOXYPHENE NAPSYLATE AND ACETAMINOPHEN
Active Ingredient: ACETAMINOPHEN; PROPOXYPHENE NAPSYLATE
Strength: 650MG;100MG
Dosage Form/Route: TABLET;ORAL
Application: A075738 | Product #001
Applicant: MALLINCKRODT INC
Approved: Feb 2, 2001 | RLD: No | RS: No | Type: DISCN